FAERS Safety Report 17159549 (Version 5)
Quarter: 2020Q2

REPORT INFORMATION
  Report Type: Report from Study
  Country: None (occurrence: US)
  Receive Date: 20191216
  Receipt Date: 20200402
  Transmission Date: 20200713
  Serious: Yes (Hospitalization, Other)
  Sender: FDA-Public Use
  Company Number: US-ABBVIE-19P-163-3193479-00

PATIENT
  Age: 89 Year
  Sex: Female

DRUGS (13)
  1. IMBRUVICA [Suspect]
     Active Substance: IBRUTINIB
     Indication: WALDENSTROM^S MACROGLOBULINAEMIA
     Route: 048
     Dates: start: 201701
  2. MIDODRINE [Concomitant]
     Active Substance: MIDODRINE
     Indication: PRODUCT USED FOR UNKNOWN INDICATION
  3. IRON [Concomitant]
     Active Substance: IRON
     Indication: PRODUCT USED FOR UNKNOWN INDICATION
     Dosage: PILL 2
  4. VITAMIN B COMPLEX [Concomitant]
     Active Substance: CYANOCOBALAMIN\DEXPANTHENOL\NIACINAMIDE\PYRIDOXINE HYDROCHLORIDE\RIBOFLAVIN 5^-PHOSPHATE SODIUM\THIAMINE HYDROCHLORIDE\VITAMIN B COMPLEX
     Indication: PRODUCT USED FOR UNKNOWN INDICATION
  5. TIMOLOL. [Concomitant]
     Active Substance: TIMOLOL
     Indication: PRODUCT USED FOR UNKNOWN INDICATION
  6. IMBRUVICA [Suspect]
     Active Substance: IBRUTINIB
     Route: 048
  7. GLIPIZIDE. [Concomitant]
     Active Substance: GLIPIZIDE
     Indication: PRODUCT USED FOR UNKNOWN INDICATION
  8. ARTIFICIAL TEARS [Concomitant]
     Active Substance: GLYCERIN\HYPROMELLOSES\POLYETHYLENE GLYCOL 400
     Indication: PRODUCT USED FOR UNKNOWN INDICATION
     Dosage: BOTH EYES
  9. LATANOPROST. [Concomitant]
     Active Substance: LATANOPROST
     Indication: PRODUCT USED FOR UNKNOWN INDICATION
     Dosage: LEFT EYE
  10. IMBRUVICA [Suspect]
     Active Substance: IBRUTINIB
     Indication: NON-HODGKIN^S LYMPHOMA
     Route: 048
     Dates: start: 20170107, end: 20180430
  11. IMBRUVICA [Suspect]
     Active Substance: IBRUTINIB
     Indication: NON-HODGKIN^S LYMPHOMA
     Route: 048
     Dates: start: 20180501, end: 20200218
  12. VITAMIN B12 [Concomitant]
     Active Substance: CYANOCOBALAMIN
     Indication: PRODUCT USED FOR UNKNOWN INDICATION
     Dosage: 1X MONTH
     Route: 050
  13. SIMVASTATIN. [Concomitant]
     Active Substance: SIMVASTATIN
     Indication: PRODUCT USED FOR UNKNOWN INDICATION

REACTIONS (18)
  - Fatigue [Unknown]
  - Skin laceration [Not Recovered/Not Resolved]
  - Hypoacusis [Not Recovered/Not Resolved]
  - Peripheral swelling [Unknown]
  - Therapy change [Unknown]
  - Joint swelling [Recovered/Resolved]
  - Speech disorder [Not Recovered/Not Resolved]
  - Anaemia [Unknown]
  - Cough [Recovered/Resolved]
  - Depressed mood [Unknown]
  - Bronchitis [Unknown]
  - Loss of consciousness [Unknown]
  - Memory impairment [Recovering/Resolving]
  - Dry skin [Recovered/Resolved]
  - Orthostatic hypotension [Unknown]
  - Femur fracture [Recovering/Resolving]
  - Fall [Recovering/Resolving]
  - Oedema peripheral [Unknown]

NARRATIVE: CASE EVENT DATE: 20191208
